FAERS Safety Report 10237766 (Version 1)
Quarter: 2014Q2

REPORT INFORMATION
  Report Type: Spontaneous
  Country: US (occurrence: None)
  Receive Date: 20140612
  Receipt Date: 20140612
  Transmission Date: 20141212
  Serious: Yes (Other)
  Sender: FDA-Public Use
  Company Number: None

PATIENT
  Sex: Female

DRUGS (11)
  1. SOVALDI [Suspect]
     Indication: HEPATITIS
     Route: 048
     Dates: start: 20140422
  2. OLYSIO [Suspect]
     Indication: HEPATITIS
     Route: 048
     Dates: start: 20140415
  3. CALADRYL [Concomitant]
  4. CALADRYL [Concomitant]
  5. HYDROCORT [Concomitant]
  6. TRAMADOL [Concomitant]
  7. CITALOPRAM [Concomitant]
  8. PROMETHAZINE [Concomitant]
  9. AMLODIPINE [Concomitant]
  10. HCTZ [Concomitant]
  11. METFORMIN [Concomitant]

REACTIONS (1)
  - Dry skin [None]
